FAERS Safety Report 10349140 (Version 1)
Quarter: 2014Q3

REPORT INFORMATION
  Report Type: Spontaneous
  Country: US (occurrence: US)
  Receive Date: 20140730
  Receipt Date: 20140730
  Transmission Date: 20150326
  Serious: Yes (Other)
  Sender: FDA-Public Use
  Company Number: US-JNJCP-30000231084

PATIENT
  Sex: Female

DRUGS (1)
  1. NEUTROGENA ULTIMATE SPORT SUNBLOCK SPF 70 PLUS [Suspect]
     Active Substance: AVOBENZONE\HOMOSALATE\OCTISALATE\OCTOCRYLENE\OXYBENZONE
     Indication: PROPHYLAXIS
     Dosage: APPLIED LIBERALLY, ONCE, ON FACE
     Route: 061
     Dates: end: 20140714

REACTIONS (4)
  - Expired product administered [Unknown]
  - Asthma [Recovered/Resolved]
  - Product expiration date issue [Unknown]
  - Eye swelling [Recovered/Resolved]

NARRATIVE: CASE EVENT DATE: 20140714
